FAERS Safety Report 11803526 (Version 1)
Quarter: 2015Q4

REPORT INFORMATION
  Report Type: Report from Study
  Country: AU (occurrence: AU)
  Receive Date: 20151204
  Receipt Date: 20151204
  Transmission Date: 20160305
  Serious: Yes (Hospitalization, Other)
  Sender: FDA-Public Use
  Company Number: AU-CELGENE-AUS-2015116954

PATIENT
  Age: 77 Year
  Sex: Male
  Weight: 93 kg

DRUGS (2)
  1. AZACITIDINE INJECTABLE [Suspect]
     Active Substance: AZACITIDINE
     Indication: MYELODYSPLASTIC SYNDROME
     Route: 065
     Dates: start: 20150318, end: 20150324
  2. ELTROMBOPAG [Suspect]
     Active Substance: ELTROMBOPAG
     Indication: MYELODYSPLASTIC SYNDROME
     Route: 048
     Dates: start: 20150318, end: 20150501

REACTIONS (2)
  - Hepatic failure [Recovered/Resolved]
  - Enterococcal infection [Recovered/Resolved with Sequelae]

NARRATIVE: CASE EVENT DATE: 20150427
